FAERS Safety Report 9677626 (Version 3)
Quarter: 2013Q4

REPORT INFORMATION
  Report Type: Spontaneous
  Country: NL (occurrence: NL)
  Receive Date: 20131108
  Receipt Date: 20131216
  Transmission Date: 20140711
  Serious: Yes (Death)
  Sender: FDA-Public Use
  Company Number: NL-NOVOPROD-391756

PATIENT
  Age: 76 Year
  Sex: Female
  Weight: 65 kg

DRUGS (11)
  1. NOVOMIX 30 FLEXPEN [Suspect]
     Indication: TYPE 2 DIABETES MELLITUS
     Dosage: UNK
     Route: 058
     Dates: start: 20120510
  2. NOVOMIX 30 FLEXPEN [Suspect]
     Dosage: UNK
     Route: 058
  3. NOVOMIX 30 FLEXPEN [Suspect]
     Dosage: UNK
     Route: 058
  4. NOVOMIX 30 FLEXPEN [Suspect]
     Dosage: UNK
     Route: 058
     Dates: end: 20131017
  5. DIGOXIN [Concomitant]
     Dosage: 62.5 MCG ONCE DAILY
  6. HALOPERIDOL                        /00027402/ [Concomitant]
     Dosage: 1 MG PRN
  7. HYDROCHLOROTHIAZIDE [Concomitant]
     Dosage: 12.5 MG, QD
  8. LACTULOSE [Concomitant]
     Dosage: 15 ML OID
  9. METOPROLOL                         /00376902/ [Concomitant]
     Dosage: 50 MG, QD
  10. MORPHINE                           /00036302/ [Concomitant]
     Dosage: 5 MG, PRN (UPTO 6 TIMES DAILY)
  11. OXAZEPAM [Concomitant]
     Dosage: THREE TIMES DAILY

REACTIONS (1)
  - Death [Fatal]
